FAERS Safety Report 6304758-6 (Version None)
Quarter: 2009Q3

REPORT INFORMATION
  Report Type: 
  Country: None (occurrence: None)
  Receive Date: 20090811
  Receipt Date: 20090804
  Transmission Date: 20100115
  Serious: Yes (Hospitalization)
  Sender: FDA-Public Use
  Company Number: B0587962A

PATIENT
  Sex: Female

DRUGS (1)
  1. AUGMENTIN [Suspect]
     Indication: GASTROINTESTINAL INFECTION
     Route: 065

REACTIONS (6)
  - HYPERSENSITIVITY [None]
  - HYPERTENSION [None]
  - INSOMNIA [None]
  - NAUSEA [None]
  - PYREXIA [None]
  - VOMITING [None]
